FAERS Safety Report 17792527 (Version 2)
Quarter: 2022Q1

REPORT INFORMATION
  Report Type: Spontaneous
  Country: NO (occurrence: NO)
  Receive Date: 20200515
  Receipt Date: 20220331
  Transmission Date: 20220424
  Serious: Yes (Hospitalization)
  Sender: FDA-Public Use
  Company Number: NO-SHIRE-NO202016023

PATIENT
  Age: 53 Year
  Sex: Female

DRUGS (1)
  1. LISDEXAMFETAMINE DIMESYLATE [Suspect]
     Active Substance: LISDEXAMFETAMINE DIMESYLATE
     Indication: Attention deficit hyperactivity disorder
     Dosage: 30 MILLIGRAM, BID
     Route: 065

REACTIONS (8)
  - Muscle spasms [Unknown]
  - Food craving [Unknown]
  - Stress [Unknown]
  - Therapeutic response shortened [Unknown]
  - Thyroid mass [Unknown]
  - CYP2D6 polymorphism [Unknown]
  - Hypersensitivity [Unknown]
  - Off label use [Unknown]
